FAERS Safety Report 7744598-4 (Version None)
Quarter: 2011Q3

REPORT INFORMATION
  Report Type: 
  Country: None (occurrence: None)
  Receive Date: 20110912
  Receipt Date: 20110905
  Transmission Date: 20111222
  Serious: Yes (Other)
  Sender: FDA-Public Use
  Company Number: FR-TEVA-299604ISR

PATIENT
  Sex: Male

DRUGS (7)
  1. LEUCOVORIN CALCIUM [Suspect]
     Indication: OESOPHAGEAL CARCINOMA
     Dosage: ACCORDING COURSE
     Route: 042
     Dates: start: 20110621, end: 20110720
  2. OXALIPLATIN [Suspect]
     Indication: OESOPHAGEAL CARCINOMA
     Dosage: ACCORDING COURSE
     Route: 042
     Dates: start: 20110621, end: 20110720
  3. FLUOROURACIL [Suspect]
     Indication: OESOPHAGEAL CARCINOMA
     Dosage: ACCORDING COURSE
     Route: 042
     Dates: start: 20110621, end: 20110720
  4. FORLAX [Concomitant]
  5. LANSOPRAZOLE [Concomitant]
     Dates: start: 20110706
  6. MORPHINE SULFATE [Concomitant]
  7. DURAGESIC-100 [Concomitant]

REACTIONS (2)
  - DEEP VEIN THROMBOSIS [None]
  - PULMONARY EMBOLISM [None]
